FAERS Safety Report 9276604 (Version 1)
Quarter: 2013Q2

REPORT INFORMATION
  Report Type: Spontaneous
  Country: US (occurrence: US)
  Receive Date: 20130507
  Receipt Date: 20130507
  Transmission Date: 20140414
  Serious: No
  Sender: FDA-Public Use
  Company Number: US-009507513-1304USA016176

PATIENT
  Age: 87 Year
  Sex: Male

DRUGS (6)
  1. PROSCAR [Suspect]
     Indication: BENIGN PROSTATIC HYPERPLASIA
     Dosage: 5 MG, QD
     Route: 048
     Dates: start: 200804
  2. AMIODARONE [Concomitant]
  3. COUMADIN [Concomitant]
  4. METOPROLOL [Concomitant]
  5. ZOCOR [Concomitant]
     Route: 048
  6. LASIX (FUROSEMIDE) [Concomitant]

REACTIONS (3)
  - Fibula fracture [Recovering/Resolving]
  - Blood testosterone decreased [Unknown]
  - Osteoporosis [Unknown]
